FAERS Safety Report 11000924 (Version 1)
Quarter: 2015Q2

REPORT INFORMATION
  Report Type: Spontaneous
  Country: US (occurrence: US)
  Receive Date: 20150408
  Receipt Date: 20150408
  Transmission Date: 20150821
  Serious: No
  Sender: FDA-Public Use
  Company Number: US-SA-2014SA145041

PATIENT
  Age: 74 Year
  Sex: Female

DRUGS (4)
  1. ALLEGRA [Suspect]
     Active Substance: FEXOFENADINE HYDROCHLORIDE
     Indication: PRURITUS
     Dosage: STARTED FOR MONTHS AGO
     Route: 048
     Dates: end: 20141020
  2. ALLEGRA [Suspect]
     Active Substance: FEXOFENADINE HYDROCHLORIDE
     Indication: PRURITUS
     Dosage: STARTED FOR MONTHS AGO
     Route: 048
     Dates: end: 20141020
  3. ALLEGRA [Suspect]
     Active Substance: FEXOFENADINE HYDROCHLORIDE
     Indication: ECZEMA
     Dosage: STARTED FOR MONTHS AGO
     Route: 048
     Dates: end: 20141020
  4. ALLEGRA [Suspect]
     Active Substance: FEXOFENADINE HYDROCHLORIDE
     Indication: ECZEMA
     Dosage: STARTED FOR MONTHS AGO
     Route: 048
     Dates: end: 20141020

REACTIONS (3)
  - Drug effect incomplete [Unknown]
  - Extra dose administered [Unknown]
  - Wrong technique in drug usage process [Unknown]
